FAERS Safety Report 6221553-7 (Version None)
Quarter: 2009Q2

REPORT INFORMATION
  Report Type: 
  Country: None (occurrence: None)
  Receive Date: 20090610
  Receipt Date: 20090602
  Transmission Date: 20091009
  Serious: Yes (Other)
  Sender: FDA-Public Use
  Company Number: PHEH2009US05609

PATIENT
  Sex: Male

DRUGS (4)
  1. ZOMETA [Suspect]
     Indication: MULTIPLE MYELOMA
     Dosage: 4 MG MONTHLY
     Dates: start: 20060524, end: 20090423
  2. THALIDOMIDE [Concomitant]
  3. DECADRON                                /CAN/ [Concomitant]
  4. REVLIMID [Concomitant]

REACTIONS (2)
  - GINGIVAL BLEEDING [None]
  - OSTEONECROSIS [None]
